FAERS Safety Report 21472752 (Version 2)
Quarter: 2022Q4

REPORT INFORMATION
  Report Type: Spontaneous
  Country: US (occurrence: US)
  Receive Date: 20221018
  Receipt Date: 20221019
  Transmission Date: 20230113
  Serious: No
  Sender: FDA-Public Use
  Company Number: US-PFIZER INC-202201236700

PATIENT
  Age: 73 Year
  Sex: Male
  Weight: 88.27 kg

DRUGS (1)
  1. INLYTA [Suspect]
     Active Substance: AXITINIB
     Indication: Renal cancer stage IV
     Dosage: 5 MG, 2X/DAY
     Dates: start: 20220920

REACTIONS (3)
  - Dizziness [Unknown]
  - Visual impairment [Not Recovered/Not Resolved]
  - Visual field defect [Not Recovered/Not Resolved]

NARRATIVE: CASE EVENT DATE: 20221012
